FAERS Safety Report 7233702-2 (Version None)
Quarter: 2011Q1

REPORT INFORMATION
  Report Type: 
  Country: None (occurrence: None)
  Receive Date: 20110119
  Receipt Date: 20091204
  Transmission Date: 20110831
  Serious: Yes (Hospitalization, Other)
  Sender: FDA-Public Use
  Company Number: US-TEVA-217278USA

PATIENT
  Sex: Male

DRUGS (1)
  1. COPAXONE [Suspect]
     Indication: MULTIPLE SCLEROSIS
     Route: 058
     Dates: start: 20080101, end: 20080101

REACTIONS (5)
  - GAIT DISTURBANCE [None]
  - MOVEMENT DISORDER [None]
  - BALANCE DISORDER [None]
  - MUSCULAR WEAKNESS [None]
  - MULTIPLE SCLEROSIS RELAPSE [None]
